FAERS Safety Report 5558332-X (Version None)
Quarter: 2007Q4

REPORT INFORMATION
  Report Type: 
  Country: None (occurrence: None)
  Receive Date: 20071214
  Receipt Date: 20071202
  Transmission Date: 20080405
  Serious: Yes (Other)
  Sender: FDA-Public Use
  Company Number: FR-PFIZER INC-2007102125

PATIENT
  Age: 20 Year
  Sex: Male
  Weight: 54 kg

DRUGS (7)
  1. NEURONTIN [Suspect]
  2. TRILEPTAL [Interacting]
  3. URBANYL [Interacting]
  4. FORTUM [Concomitant]
  5. NEBCIN [Concomitant]
  6. TARGOCID [Concomitant]
  7. FUMAFER [Concomitant]

REACTIONS (3)
  - ABNORMAL BEHAVIOUR [None]
  - DRUG INTERACTION [None]
  - HYPOTHERMIA [None]
